FAERS Safety Report 19653779 (Version 6)
Quarter: 2022Q1

REPORT INFORMATION
  Report Type: Spontaneous
  Country: CA (occurrence: CA)
  Receive Date: 20210804
  Receipt Date: 20220315
  Transmission Date: 20220423
  Serious: Yes (Other)
  Sender: FDA-Public Use
  Company Number: CA-CELLTRION INC.-2021CA007566

PATIENT

DRUGS (15)
  1. INFLECTRA [Suspect]
     Active Substance: INFLIXIMAB-DYYB
     Indication: Crohn^s disease
     Dosage: 300 MG EVERY 8 WEEK
     Route: 042
     Dates: start: 20210412
  2. INFLECTRA [Suspect]
     Active Substance: INFLIXIMAB-DYYB
     Dosage: 300 MG, EVERY 4 WEEK
     Route: 042
     Dates: start: 20210412
  3. INFLECTRA [Suspect]
     Active Substance: INFLIXIMAB-DYYB
     Dosage: 300 MG EVERY 8 WEEK
     Route: 042
     Dates: start: 20210427
  4. INFLECTRA [Suspect]
     Active Substance: INFLIXIMAB-DYYB
     Dosage: 300 MG, EVERY 8 WEEK
     Route: 042
     Dates: start: 20210427
  5. INFLECTRA [Suspect]
     Active Substance: INFLIXIMAB-DYYB
     Dosage: 300 MG, EVERY 8 WEEK
     Route: 042
     Dates: start: 20210527
  6. INFLECTRA [Suspect]
     Active Substance: INFLIXIMAB-DYYB
     Dosage: 300 MG, EVERY 8 WEEK
     Route: 042
     Dates: start: 20210722
  7. INFLECTRA [Suspect]
     Active Substance: INFLIXIMAB-DYYB
     Dosage: 300 MG, EVERY 8 WEEK
     Route: 042
     Dates: start: 20211012
  8. INFLECTRA [Suspect]
     Active Substance: INFLIXIMAB-DYYB
     Dosage: 300 MG, EVERY 8 WEEK
     Route: 042
     Dates: start: 20211109
  9. INFLECTRA [Suspect]
     Active Substance: INFLIXIMAB-DYYB
     Dosage: 300 MG, EVERY 8 WEEK
     Route: 042
     Dates: start: 20211206
  10. INFLECTRA [Suspect]
     Active Substance: INFLIXIMAB-DYYB
     Dosage: 300 MG ,EVERY 6 WEEK
     Route: 042
     Dates: start: 20220203
  11. INFLECTRA [Suspect]
     Active Substance: INFLIXIMAB-DYYB
     Dosage: 300 MG ,EVERY 4 WEEK
     Dates: start: 20220203
  12. INFLECTRA [Suspect]
     Active Substance: INFLIXIMAB-DYYB
     Dosage: 300 MG ,EVERY 4 WEEK
     Dates: start: 20220304
  13. AZATHIOPRINE [Concomitant]
     Active Substance: AZATHIOPRINE
     Indication: Crohn^s disease
     Dosage: 50 MG, DAILY
     Route: 048
     Dates: start: 20210412
  14. ACETAMINOPHEN [Concomitant]
     Active Substance: ACETAMINOPHEN
     Dosage: 325-650 MG (WITH INFUSION)
     Route: 048
  15. BENADRYL [Concomitant]
     Active Substance: DIPHENHYDRAMINE HYDROCHLORIDE
     Dosage: 25-50 MG (WITH INFUSION)
     Route: 048

REACTIONS (15)
  - Condition aggravated [Unknown]
  - Drug level decreased [Unknown]
  - Fatigue [Unknown]
  - Anxiety [Unknown]
  - Asthenia [Unknown]
  - Hyperhidrosis [Unknown]
  - Impaired work ability [Unknown]
  - Nausea [Recovered/Resolved]
  - Panic attack [Recovered/Resolved]
  - Tremor [Unknown]
  - Vomiting [Recovered/Resolved]
  - Abdominal distension [Unknown]
  - Off label use [Unknown]
  - Intentional product use issue [Unknown]
  - Off label use [Unknown]

NARRATIVE: CASE EVENT DATE: 20210412
